FAERS Safety Report 4800572-9 (Version None)
Quarter: 2005Q4

REPORT INFORMATION
  Report Type: 
  Country: None (occurrence: None)
  Receive Date: 20051011
  Receipt Date: 20050928
  Transmission Date: 20060501
  Serious: Yes (Other)
  Sender: FDA-Public Use
  Company Number: 2005136724

PATIENT
  Age: 67 Year
  Sex: Female

DRUGS (9)
  1. MEDROL [Suspect]
     Indication: MYCOBACTERIUM CHELONEI INFECTION
     Dosage: 10 MG, ORAL
     Route: 048
  2. MEDROL [Suspect]
     Indication: NEPHROTIC SYNDROME
     Dosage: 10 MG, ORAL
     Route: 048
  3. CLARITHROMYCIN [Suspect]
     Indication: MYCOBACTERIUM CHELONEI INFECTION
     Dates: start: 20030101
  4. ERYTHROMYCIN [Suspect]
     Indication: MYCOBACTERIUM CHELONEI INFECTION
  5. NEORAL [Suspect]
     Indication: NEPHROTIC SYNDROME
     Dosage: 50 MG, ORAL
     Route: 048
  6. NEORAL [Suspect]
     Indication: SYSTEMIC SCLEROSIS
     Dosage: 50 MG, ORAL
     Route: 048
  7. KANAMYCIN [Suspect]
     Indication: MYCOBACTERIUM CHELONEI INFECTION
  8. MINOCYCLINE HCL [Suspect]
     Indication: CELLULITIS
     Dates: start: 20020701
  9. MINOCYCLINE HCL [Suspect]
     Indication: PARONYCHIA
     Dates: start: 20020701

REACTIONS (10)
  - CELLULITIS [None]
  - DRUG INEFFECTIVE [None]
  - FINGER AMPUTATION [None]
  - INDURATION [None]
  - INTESTINAL ULCER PERFORATION [None]
  - MYCOBACTERIUM CHELONEI INFECTION [None]
  - MYELITIS [None]
  - PARONYCHIA [None]
  - RASH [None]
  - SKIN INFECTION [None]
